FAERS Safety Report 19968165 (Version 1)
Quarter: 2021Q4

REPORT INFORMATION
  Report Type: Spontaneous
  Country: US (occurrence: US)
  Receive Date: 20211019
  Receipt Date: 20211019
  Transmission Date: 20220303
  Serious: Yes (Life-Threatening, Hospitalization)
  Sender: FDA-Public Use
  Company Number: None

PATIENT
  Age: 63 Year
  Sex: Male

DRUGS (1)
  1. KEVZARA [Suspect]
     Active Substance: SARILUMAB
     Indication: COVID-19
     Dates: start: 20211007, end: 20211007

REACTIONS (5)
  - Leukocytosis [None]
  - Intestinal ischaemia [None]
  - Intestinal perforation [None]
  - Bifidobacterium infection [None]
  - Blood beta-D-glucan positive [None]

NARRATIVE: CASE EVENT DATE: 20211011
